FAERS Safety Report 9754038 (Version 1)
Quarter: 2013Q4

REPORT INFORMATION
  Report Type: Spontaneous
  Country: US (occurrence: US)
  Receive Date: 20131213
  Receipt Date: 20131213
  Transmission Date: 20140711
  Serious: No
  Sender: FDA-Public Use
  Company Number: US-GLAXOSMITHKLINE-A1011409A

PATIENT
  Age: 60 Year
  Sex: Female

DRUGS (2)
  1. NICORETTE NICOTINE POLACRILEX MINT LOZENGE, 4MG [Suspect]
     Indication: EX-TOBACCO USER
  2. NICODERM CQ [Suspect]
     Indication: EX-TOBACCO USER

REACTIONS (7)
  - Dyspepsia [Recovered/Resolved]
  - Nausea [Recovered/Resolved]
  - Dysphagia [Recovered/Resolved]
  - Expired drug administered [Unknown]
  - Dermatitis contact [Recovered/Resolved]
  - Application site erosion [Recovered/Resolved]
  - Application site urticaria [Recovered/Resolved]
